FAERS Safety Report 4309624-3 (Version None)
Quarter: 2004Q1

REPORT INFORMATION
  Report Type: 
  Country: None (occurrence: None)
  Receive Date: 20040302
  Receipt Date: 20031204
  Transmission Date: 20041129
  Serious: Yes (Death, Other)
  Sender: FDA-Public Use
  Company Number: WAES 0312DEU00063

PATIENT
  Age: 48 Year
  Sex: Male
  Weight: 85 kg

DRUGS (4)
  1. PRIMAXIN [Suspect]
     Indication: EXTREMITY NECROSIS
     Route: 042
  2. CLINDAMYCIN [Suspect]
     Indication: EXTREMITY NECROSIS
     Route: 042
  3. INSULIN [Concomitant]
  4. LEVOFLOXACIN [Suspect]
     Indication: EXTREMITY NECROSIS
     Route: 042

REACTIONS (7)
  - ARTERIAL BYPASS OPERATION [None]
  - CLOSTRIDIUM COLITIS [None]
  - DIARRHOEA [None]
  - FUNGAEMIA [None]
  - MULTI-ORGAN FAILURE [None]
  - SEPSIS [None]
  - TOXIC DILATATION OF COLON [None]
